FAERS Safety Report 6328026-1 (Version None)
Quarter: 2009Q3

REPORT INFORMATION
  Report Type: 
  Country: None (occurrence: None)
  Receive Date: 20090825
  Receipt Date: 20080828
  Transmission Date: 20100115
  Serious: No
  Sender: FDA-Public Use
  Company Number: US-ABBOTT-08P-163-0473252-00

PATIENT
  Age: 79 Year
  Sex: Female

DRUGS (2)
  1. SYNTHROID [Suspect]
     Indication: HYPERPARATHYROIDISM
     Route: 048
     Dates: start: 20080601, end: 20080701
  2. SYNTHROID [Suspect]
     Route: 048

REACTIONS (3)
  - BLOOD CALCIUM INCREASED [None]
  - CHEST DISCOMFORT [None]
  - PALPITATIONS [None]
